FAERS Safety Report 21479878 (Version 1)
Quarter: 2022Q4

REPORT INFORMATION
  Report Type: Spontaneous
  Country: NL (occurrence: NL)
  Receive Date: 20221019
  Receipt Date: 20221019
  Transmission Date: 20230112
  Serious: Yes (Hospitalization)
  Sender: FDA-Public Use
  Company Number: NL-ROCHE-3164873

PATIENT
  Age: 73 Year
  Sex: Male

DRUGS (5)
  1. CAPECITABINE [Suspect]
     Active Substance: CAPECITABINE
     Indication: Colorectal cancer metastatic
     Dosage: UNK
     Route: 048
     Dates: start: 20211112, end: 20220128
  2. BEVACIZUMAB [Suspect]
     Active Substance: BEVACIZUMAB
     Indication: Colorectal cancer metastatic
     Dosage: SOLUTION FOR INFUSION
     Route: 042
     Dates: start: 20211112, end: 20211227
  3. BEVACIZUMAB [Suspect]
     Active Substance: BEVACIZUMAB
     Dosage: SOLUTION FOR INFUSION
     Route: 042
     Dates: start: 20211112, end: 20220117
  4. OXALIPLATIN [Suspect]
     Active Substance: OXALIPLATIN
     Indication: Colorectal cancer metastatic
     Dosage: UNK
     Route: 065
     Dates: start: 20211112, end: 20211227
  5. OXALIPLATIN [Suspect]
     Active Substance: OXALIPLATIN
     Dosage: UNK
     Route: 042
     Dates: start: 20211112, end: 20220117

REACTIONS (7)
  - Anastomotic leak [Recovering/Resolving]
  - Impaired gastric emptying [Recovered/Resolved]
  - Wound dehiscence [Recovering/Resolving]
  - Pneumatosis intestinalis [Recovered/Resolved]
  - Small intestinal perforation [Not Recovered/Not Resolved]
  - Dyspepsia [Recovered/Resolved]
  - Pneumonia [Recovering/Resolving]

NARRATIVE: CASE EVENT DATE: 20220318
